FAERS Safety Report 6900273-7 (Version None)
Quarter: 2010Q3

REPORT INFORMATION
  Report Type: 
  Country: None (occurrence: None)
  Receive Date: 20100708
  Receipt Date: 20100331
  Transmission Date: 20110219
  Serious: Yes (Death, Other)
  Sender: FDA-Public Use
  Company Number: 2010042058

PATIENT
  Age: 67 Year
  Sex: Male

DRUGS (1)
  1. CHANTIX [Suspect]
     Dates: start: 20100201

REACTIONS (3)
  - ABNORMAL BEHAVIOUR [None]
  - COMPLETED SUICIDE [None]
  - IRRITABILITY [None]
